FAERS Safety Report 9000687 (Version 1)
Quarter: 2012Q4

REPORT INFORMATION
  Report Type: Spontaneous
  Country: IN (occurrence: None)
  Receive Date: 20121226
  Receipt Date: 20121226
  Transmission Date: 20130627
  Serious: Yes (Hospitalization)
  Sender: FDA-Public Use
  Company Number: B0854465A

PATIENT
  Age: 12 Year
  Sex: Male

DRUGS (3)
  1. LAMOTRIGINE (FORMULATION UNKNOWN) (GENERIC) (LAMOTRIGINE) [Suspect]
     Indication: CONVULSION
  2. VALPROATE SODIUM [Concomitant]
  3. LEVETIRACETAM [Concomitant]

REACTIONS (18)
  - Drug reaction with eosinophilia and systemic symptoms [None]
  - Abdominal pain [None]
  - Angioedema [None]
  - Scleral discolouration [None]
  - Haemoglobin decreased [None]
  - Aspartate aminotransferase increased [None]
  - Alanine aminotransferase increased [None]
  - Gamma-glutamyltransferase increased [None]
  - Blood alkaline phosphatase increased [None]
  - Blood bilirubin increased [None]
  - Leukocytosis [None]
  - Rash maculo-papular [None]
  - Erythema [None]
  - Conjunctival hyperaemia [None]
  - Scab [None]
  - Pruritus [None]
  - Pyrexia [None]
  - Vomiting [None]
